FAERS Safety Report 4493477-7 (Version None)
Quarter: 2004Q4

REPORT INFORMATION
  Report Type: 
  Country: None (occurrence: None)
  Receive Date: 20041105
  Receipt Date: 20041021
  Transmission Date: 20050328
  Serious: Yes (Other)
  Sender: FDA-Public Use
  Company Number: CH-JNJFOC-20030900090

PATIENT
  Sex: Female

DRUGS (4)
  1. TOPAMAX [Suspect]
     Route: 049
     Dates: end: 20030725
  2. TOPAMAX [Suspect]
     Indication: DEPRESSION
     Route: 049
     Dates: end: 20030725
  3. MOSEGOR [Suspect]
     Route: 049
     Dates: end: 20030715
  4. FLOXYFRAL [Suspect]
     Indication: DEPRESSION
     Route: 049

REACTIONS (3)
  - ABORTION INDUCED [None]
  - DRUG EXPOSURE DURING PREGNANCY [None]
  - DRUG INTERACTION [None]
